FAERS Safety Report 5276807-8 (Version None)
Quarter: 2007Q1

REPORT INFORMATION
  Report Type: 
  Country: None (occurrence: None)
  Receive Date: 20070327
  Receipt Date: 20070316
  Transmission Date: 20070707
  Serious: Yes (Hospitalization)
  Sender: FDA-Public Use
  Company Number: US-JNJFOC-20070304431

PATIENT
  Sex: Female
  Weight: 59.88 kg

DRUGS (13)
  1. DURAGESIC-100 [Suspect]
     Indication: PAIN
     Route: 062
  2. AVAPRO [Concomitant]
     Indication: HYPERTENSION
     Route: 048
  3. CYMBALTA [Concomitant]
     Indication: DEPRESSION
     Route: 048
  4. INDERAL [Concomitant]
     Route: 048
  5. POTASSIUM CHLORIDE [Concomitant]
     Indication: BLOOD POTASSIUM DECREASED
     Route: 048
  6. MERIDIA [Concomitant]
     Route: 048
  7. PROTONIX [Concomitant]
     Indication: GASTROOESOPHAGEAL REFLUX DISEASE
     Route: 048
  8. PROVIGIL [Concomitant]
     Route: 048
  9. ROZEREM [Concomitant]
     Indication: INSOMNIA
     Route: 048
  10. SPIRIVA [Concomitant]
     Indication: DYSPNOEA
     Route: 055
  11. TIZANIDINE HCL [Concomitant]
     Indication: MUSCLE RELAXANT THERAPY
     Route: 048
  12. TOPAMAX [Concomitant]
     Indication: TREMOR
     Route: 048
  13. TRAZODONE HCL [Concomitant]
     Indication: DEPRESSION
     Route: 048

REACTIONS (6)
  - APPLICATION SITE RASH [None]
  - DYSPNOEA [None]
  - MYCOBACTERIUM AVIUM COMPLEX INFECTION [None]
  - NODULE [None]
  - OSTEOPOROSIS [None]
  - TREMOR [None]
